FAERS Safety Report 9803312 (Version 1)
Quarter: 2014Q1

REPORT INFORMATION
  Report Type: Spontaneous
  Country: US (occurrence: None)
  Receive Date: 20140107
  Receipt Date: 20140107
  Transmission Date: 20141002
  Serious: No
  Sender: FDA-Public Use
  Company Number: None

PATIENT
  Age: 40 Year
  Sex: Female
  Weight: 74.84 kg

DRUGS (9)
  1. DIFLUCAN [Suspect]
     Indication: FUNGAL INFECTION
     Dosage: 1 TAB  ONCE  ORAL
     Route: 048
     Dates: start: 20140102, end: 20140102
  2. OMNIPOD INSULIN PUMP [Concomitant]
  3. NOVALOG INSULIN [Concomitant]
  4. LOSARTAN [Concomitant]
  5. MOBIC [Concomitant]
  6. FISH OIL [Concomitant]
  7. HYDROCODONE [Concomitant]
  8. BIOTN [Concomitant]
  9. GARCINIA CAMBOGIA [Concomitant]

REACTIONS (6)
  - Aphthous stomatitis [None]
  - Proctalgia [None]
  - Conjunctival hyperaemia [None]
  - Eye pain [None]
  - Eye swelling [None]
  - Glossodynia [None]
